FAERS Safety Report 8239710-7 (Version None)
Quarter: 2012Q1

REPORT INFORMATION
  Report Type: 
  Country: None (occurrence: None)
  Receive Date: 20120328
  Receipt Date: 20120228
  Transmission Date: 20120608
  Serious: Yes (Other)
  Sender: FDA-Public Use
  Company Number: PHEH2012US004334

PATIENT
  Age: 67 Year
  Sex: Male

DRUGS (11)
  1. AMTURNIDE [Suspect]
     Dosage: 1 DF (300/10/12.5 MG), UNK
  2. LIPITOR [Concomitant]
  3. PLAVIX [Concomitant]
  4. NIACIN [Concomitant]
  5. COREG [Concomitant]
  6. TEKAMLO [Suspect]
     Dosage: 1 DF (300/5 MG), QD
     Dates: end: 20111102
  7. HYDROCHLOROTHIAZIDE [Concomitant]
  8. RAMAPO [Concomitant]
  9. TEKAMLO [Suspect]
     Dosage: 1 DF (300/10 MG), QD
     Dates: start: 20111001
  10. ZETIA [Concomitant]
  11. PERAZONSIN [Concomitant]

REACTIONS (3)
  - OEDEMA PERIPHERAL [None]
  - FOOT DEFORMITY [None]
  - GAIT DISTURBANCE [None]
